FAERS Safety Report 10552008 (Version 1)
Quarter: 2014Q4

REPORT INFORMATION
  Report Type: Spontaneous
  Country: US (occurrence: US)
  Receive Date: 20141029
  Receipt Date: 20141029
  Transmission Date: 20150529
  Serious: Yes (Other)
  Sender: FDA-Public Use
  Company Number: CHPA2014US014466

PATIENT
  Age: 81 Year
  Sex: Female

DRUGS (6)
  1. VOLTAREN [Suspect]
     Active Substance: DICLOFENAC SODIUM
     Indication: ARTHRITIS
     Dosage: A LITTLE BIT ON FINGER, BID
     Route: 061
     Dates: start: 2011
  2. VOLTAREN [Suspect]
     Active Substance: DICLOFENAC SODIUM
     Indication: CONTUSION
  3. VOLTAREN [Suspect]
     Active Substance: DICLOFENAC SODIUM
     Indication: NECK PAIN
  4. VOLTAREN [Suspect]
     Active Substance: DICLOFENAC SODIUM
     Indication: KNEE ARTHROPLASTY
  5. VOLTAREN [Suspect]
     Active Substance: DICLOFENAC SODIUM
     Indication: OFF LABEL USE
  6. VOLTAREN [Suspect]
     Active Substance: DICLOFENAC SODIUM
     Indication: ARTHRITIS
     Dosage: UNK
     Route: 061
     Dates: start: 2009

REACTIONS (9)
  - Drug administered at inappropriate site [Unknown]
  - Application site pain [Not Recovered/Not Resolved]
  - Fall [Not Recovered/Not Resolved]
  - Neck pain [Unknown]
  - Contusion [Not Recovered/Not Resolved]
  - Wrong technique in drug usage process [Unknown]
  - Arthritis [Unknown]
  - Underdose [Unknown]
  - Therapeutic response unexpected [Unknown]

NARRATIVE: CASE EVENT DATE: 2011
